FAERS Safety Report 8598503-1 (Version None)
Quarter: 2012Q3

REPORT INFORMATION
  Report Type: 
  Country: None (occurrence: None)
  Receive Date: 20120816
  Receipt Date: 20120801
  Transmission Date: 20120928
  Serious: Yes (Hospitalization, Congenital Anomaly)
  Sender: FDA-Public Use
  Company Number: US-ROCHE-1098975

PATIENT
  Sex: Male

DRUGS (10)
  1. OMALIZUMAB [Suspect]
     Route: 064
     Dates: start: 20120531
  2. OMALIZUMAB [Suspect]
     Indication: ASTHMA
     Route: 064
     Dates: start: 20070730
  3. OMALIZUMAB [Suspect]
     Route: 064
     Dates: start: 20111221
  4. OMALIZUMAB [Suspect]
     Route: 064
     Dates: start: 20120322
  5. OMALIZUMAB [Suspect]
     Route: 064
     Dates: start: 20120425
  6. OMALIZUMAB [Suspect]
     Route: 064
     Dates: start: 20111121
  7. OMALIZUMAB [Suspect]
     Route: 064
     Dates: start: 20120125
  8. OMALIZUMAB [Suspect]
     Route: 064
     Dates: start: 20120220
  9. OMALIZUMAB [Suspect]
     Route: 064
     Dates: start: 20111004
  10. OMALIZUMAB [Suspect]
     Route: 064
     Dates: start: 20120702

REACTIONS (3)
  - ANKYLOGLOSSIA CONGENITAL [None]
  - JAUNDICE NEONATAL [None]
  - MATERNAL EXPOSURE TIMING UNSPECIFIED [None]
